FAERS Safety Report 14238300 (Version 3)
Quarter: 2020Q1

REPORT INFORMATION
  Report Type: Spontaneous
  Country: US (occurrence: US)
  Receive Date: 20171130
  Receipt Date: 20200103
  Transmission Date: 20200409
  Serious: No
  Sender: FDA-Public Use
  Company Number: US-PFIZER INC-2016519660

PATIENT
  Age: 73 Year
  Sex: Female

DRUGS (12)
  1. TYLENOL [Concomitant]
     Active Substance: ACETAMINOPHEN
     Dosage: UNK, AS NEEDED (1-2 TABLET BY ORAL ROUTE EVERY 4 HOURS)
     Route: 048
  2. LETROZOLE. [Concomitant]
     Active Substance: LETROZOLE
     Dosage: 2.5 MG, DAILY (EVERYDAY)
     Route: 048
  3. SENOKOT-S [Concomitant]
     Active Substance: DOCUSATE SODIUM\SENNOSIDES
     Dosage: 2 DF, AS NEEDED (SENNOSIDES: 8.6MG; DOCUSATE SODIUM: 50MG) TAKE 2 TABLET 2 TIMES EVERY DAY (8.6/50)
     Route: 048
  4. IBUPROFEN. [Concomitant]
     Active Substance: IBUPROFEN
     Dosage: UNK, AS NEEDED (1-2 TABLET BY ORAL ROUTE EVERY 6 HOURS AS NEEDED WITH FOOD)
     Route: 048
  5. IBRANCE [Suspect]
     Active Substance: PALBOCICLIB
     Indication: BREAST CANCER FEMALE
     Dosage: 125 MG, CYCLIC, 1 DAILY DAYS 1-21 OF 28 DAYS
  6. ZOFRAN [Concomitant]
     Active Substance: ONDANSETRON HYDROCHLORIDE
     Indication: NAUSEA
     Dosage: 8 MG, AS NEEDED (EVERY 8 HOURS)
     Route: 048
  7. LEVOTHYROXINE. [Concomitant]
     Active Substance: LEVOTHYROXINE
     Dosage: 150 UG, AS NEEDED (1 TABLET BY ORAL ROUTE EVERY DAY AS NEEDED)
     Route: 048
  8. ZANTAC [Concomitant]
     Active Substance: RANITIDINE HYDROCHLORIDE
     Dosage: 300 MG, 1X/DAY (HS)
     Route: 048
  9. MIRALAX [Concomitant]
     Active Substance: POLYETHYLENE GLYCOL 3350
     Dosage: 17 G, DAILY (EVERY DAY MIXED WITH 8 OZ WATER, JUICE, SODA, COFFEE OR TEA)
     Route: 048
  10. IBRANCE [Suspect]
     Active Substance: PALBOCICLIB
     Dosage: 75 MG, UNK
  11. METOPROLOL SUCCINATE. [Concomitant]
     Active Substance: METOPROLOL SUCCINATE
     Dosage: 30 MG, DAILY (EVERY DAY)
     Route: 048
  12. PERCOCET [Concomitant]
     Active Substance: ACETAMINOPHEN\OXYCODONE HYDROCHLORIDE
     Dosage: UNK, AS NEEDED ([OXYCODONE HYDROCHLORIDE: 2.5 MG/ ACETAMINOPHEN 325MG] TAKE 1-2 TABLET EVERY 6 HOUR)
     Route: 048

REACTIONS (1)
  - Hypoacusis [Unknown]
